FAERS Safety Report 6153231-7 (Version None)
Quarter: 2009Q2

REPORT INFORMATION
  Report Type: 
  Country: None (occurrence: None)
  Receive Date: 20090409
  Receipt Date: 20090331
  Transmission Date: 20091009
  Serious: Yes (Other)
  Sender: FDA-Public Use
  Company Number: GXKR2009JP04176

PATIENT
  Age: 38 Year
  Sex: Male

DRUGS (3)
  1. RIFAMPICIN [Suspect]
     Indication: STERILISATION
     Dosage: ORAL
     Route: 048
     Dates: start: 20090318
  2. MINOCYCLINE HCL [Suspect]
     Indication: STERILISATION
     Dates: start: 20090318, end: 20090325
  3. TARGOCID [Suspect]
     Indication: STERILISATION
     Dosage: INJECTION NOS
     Route: 042
     Dates: start: 20090318, end: 20090328

REACTIONS (1)
  - GASTRIC ULCER [None]
